FAERS Safety Report 14245762 (Version 2)
Quarter: 2017Q4

REPORT INFORMATION
  Report Type: Spontaneous
  Country: NO (occurrence: NO)
  Receive Date: 20171204
  Receipt Date: 20171211
  Transmission Date: 20180321
  Serious: Yes (Death, Other)
  Sender: FDA-Public Use
  Company Number: NO-ROCHE-2030620

PATIENT
  Sex: Male

DRUGS (1)
  1. GAZYVARO [Suspect]
     Active Substance: OBINUTUZUMAB
     Indication: PROPHYLAXIS
     Route: 065

REACTIONS (3)
  - Delirium [Not Recovered/Not Resolved]
  - Renal failure [Fatal]
  - Blood uric acid increased [Not Recovered/Not Resolved]
